FAERS Safety Report 5997272 (Version 17)
Quarter: 2013Q3

REPORT INFORMATION
  Report Type: Spontaneous
  Country: US (occurrence: US)
  Receive Date: 20060303
  Receipt Date: 20130828
  Transmission Date: 20140515
  Serious: Yes (Death, Hospitalization, Other)
  Sender: FDA-Public Use
  Company Number: PHEH2006US02521

PATIENT
  Age: 48 Year
  Sex: Female
  Weight: 69 kg

DRUGS (18)
  1. AREDIA [Suspect]
     Indication: METASTASES TO BONE
     Dosage: 90 MG, QMO
     Route: 042
     Dates: start: 20001009
  2. ZOMETA [Suspect]
     Indication: METASTASES TO BONE
     Dosage: 4 MG, QMO
     Route: 042
     Dates: start: 20030428, end: 200601
  3. ZOMETA [Suspect]
  4. TAXOTERE [Concomitant]
     Indication: BREAST CANCER
  5. TRASTUZUMAB [Concomitant]
     Indication: BREAST CANCER
  6. ANASTROZOLE [Concomitant]
     Indication: CHEMOTHERAPY
  7. TAMOXIFEN [Concomitant]
     Indication: BREAST CANCER
     Dates: end: 200004
  8. VINORELBINE [Concomitant]
     Indication: CHEMOTHERAPY
     Dates: start: 200305
  9. OXYCONTIN [Concomitant]
     Dosage: 10 MG, Q12H
  10. XELODA [Concomitant]
     Indication: BREAST CANCER
  11. ADRIAMYCIN [Concomitant]
     Indication: BREAST CANCER
  12. CYTOXAN [Concomitant]
     Indication: BREAST CANCER
  13. TAXANES [Concomitant]
     Indication: BREAST CANCER
  14. OXYCODONE [Concomitant]
     Dosage: 5 MG, Q4H
  15. TAXOL [Concomitant]
     Indication: BREAST CANCER
  16. CARBOPLATIN [Concomitant]
  17. HERCEPTIN ^GENENTECH^ [Concomitant]
  18. DURAGESIC [Concomitant]
     Dosage: 150 UG, UNK

REACTIONS (88)
  - Death [Fatal]
  - Hypotension [Unknown]
  - Fall [Unknown]
  - Syncope [Unknown]
  - Ejection fraction decreased [Unknown]
  - Osteonecrosis of jaw [Not Recovered/Not Resolved]
  - Pain in jaw [Recovering/Resolving]
  - Injury [Unknown]
  - Pain [Unknown]
  - Emotional distress [Unknown]
  - Bone disorder [Recovering/Resolving]
  - Bone loss [Unknown]
  - Oedema mouth [Recovered/Resolved]
  - Erythema [Recovered/Resolved]
  - Oral pain [Recovering/Resolving]
  - Toothache [Unknown]
  - Dental caries [Unknown]
  - Oral infection [Recovering/Resolving]
  - Neoplasm progression [Unknown]
  - Malignant neoplasm progression [Unknown]
  - Metastasis [Not Recovered/Not Resolved]
  - Metastases to central nervous system [Not Recovered/Not Resolved]
  - Headache [Not Recovered/Not Resolved]
  - Tumour marker increased [Unknown]
  - Back pain [Not Recovered/Not Resolved]
  - Mitral valve incompetence [Unknown]
  - Tricuspid valve incompetence [Unknown]
  - Intervertebral disc protrusion [Unknown]
  - Pericardial effusion [Unknown]
  - Osteoarthritis [Unknown]
  - Pleural effusion [Unknown]
  - Ascites [Unknown]
  - Urosepsis [Unknown]
  - Escherichia infection [Unknown]
  - Systemic inflammatory response syndrome [Unknown]
  - Urinary tract infection [Unknown]
  - Chest pain [Unknown]
  - Dyspnoea [Unknown]
  - Leukopenia [Unknown]
  - Computerised tomogram abnormal [Unknown]
  - Abdominal pain [Unknown]
  - Alopecia [Unknown]
  - Vision blurred [Unknown]
  - Hypokalaemia [Unknown]
  - Pyrexia [Unknown]
  - Hypertension [Unknown]
  - Thyroid disorder [Unknown]
  - Paronychia [Unknown]
  - Haemoptysis [Unknown]
  - Ventricular hypokinesia [Unknown]
  - Pulmonary mass [Unknown]
  - Accessory spleen [Unknown]
  - Hydronephrosis [Unknown]
  - Ear pain [Unknown]
  - Dizziness [Unknown]
  - Diarrhoea [Recovered/Resolved]
  - Constipation [Unknown]
  - Fatigue [Unknown]
  - Abdominal distension [Unknown]
  - Oropharyngeal pain [Unknown]
  - Dysphagia [Unknown]
  - Oral candidiasis [Unknown]
  - Cardiomyopathy [Unknown]
  - Anaemia [Unknown]
  - Neutropenia [Unknown]
  - Adrenal insufficiency [Unknown]
  - Menopause [Unknown]
  - Sinusitis [Recovered/Resolved]
  - Sinus tachycardia [Unknown]
  - Hypoaesthesia [Unknown]
  - Paraesthesia [Unknown]
  - Intervertebral disc disorder [Unknown]
  - Metastases to abdominal cavity [Unknown]
  - Hearing impaired [Unknown]
  - Lethargy [Unknown]
  - Gait disturbance [Unknown]
  - Osteosclerosis [Unknown]
  - Malignant neoplasm of spinal cord [Unknown]
  - Second primary malignancy [Unknown]
  - Malignant neoplasm of pleura [Unknown]
  - Atelectasis [Unknown]
  - Diverticulum intestinal [Unknown]
  - Face oedema [Unknown]
  - Metastases to lymph nodes [Unknown]
  - Dehydration [Unknown]
  - Thyroid neoplasm [Unknown]
  - Tinnitus [Unknown]
  - Insomnia [Unknown]
